FAERS Safety Report 19810187 (Version 1)
Quarter: 2021Q3

REPORT INFORMATION
  Report Type: Spontaneous
  Country: US (occurrence: US)
  Receive Date: 20210907
  Receipt Date: 20210907
  Transmission Date: 20211014
  Serious: Yes (Life-Threatening, Hospitalization)
  Sender: FDA-Public Use
  Company Number: None

PATIENT
  Age: 74 Year
  Sex: Male
  Weight: 94.5 kg

DRUGS (1)
  1. INOTERSEN [Suspect]
     Active Substance: INOTERSEN SODIUM
     Indication: AMYLOIDOSIS
     Route: 058
     Dates: start: 20190802, end: 20210722

REACTIONS (4)
  - Toxicity to various agents [None]
  - Abdominal distension [None]
  - Dyspnoea [None]
  - Ascites [None]

NARRATIVE: CASE EVENT DATE: 20210727
